FAERS Safety Report 13378481 (Version 1)
Quarter: 2017Q1

REPORT INFORMATION
  Report Type: Spontaneous
  Country: US (occurrence: US)
  Receive Date: 20170328
  Receipt Date: 20170328
  Transmission Date: 20170429
  Serious: No
  Sender: FDA-Public Use
  Company Number: US-ROCHE-1091714

PATIENT
  Sex: Female

DRUGS (1)
  1. XOLAIR [Suspect]
     Active Substance: OMALIZUMAB
     Indication: ASTHMA
     Route: 065

REACTIONS (8)
  - Sinus headache [Unknown]
  - Cough [Unknown]
  - Sinusitis [Unknown]
  - Fungal skin infection [Unknown]
  - Insomnia [Unknown]
  - Headache [Unknown]
  - Wheezing [Unknown]
  - Arthritis [Unknown]
